FAERS Safety Report 8057223-2 (Version None)
Quarter: 2012Q1

REPORT INFORMATION
  Report Type: 
  Country: None (occurrence: None)
  Receive Date: 20120119
  Receipt Date: 20120112
  Transmission Date: 20120608
  Serious: Yes (Hospitalization, Other)
  Sender: FDA-Public Use
  Company Number: PHHY2010US67210

PATIENT
  Sex: Female

DRUGS (4)
  1. GLEEVEC [Suspect]
     Dosage: 400 MG, BID
     Route: 048
  2. GLEEVEC [Suspect]
     Indication: CHRONIC MYELOID LEUKAEMIA
     Dosage: 400 MG, BID
     Route: 048
     Dates: start: 20100402
  3. GLEEVEC [Suspect]
     Dosage: 600 MG, DAILY
     Dates: end: 20110601
  4. GLEEVEC [Suspect]
     Dosage: 800 MG, DAILY
     Dates: start: 20110601

REACTIONS (15)
  - MUSCLE SPASMS [None]
  - SWELLING [None]
  - PNEUMONIA [None]
  - ARTHRALGIA [None]
  - SWELLING FACE [None]
  - PAIN IN EXTREMITY [None]
  - ERYTHEMA [None]
  - VOMITING [None]
  - OSTEOARTHRITIS [None]
  - RASH [None]
  - NAUSEA [None]
  - DIARRHOEA [None]
  - FLUID RETENTION [None]
  - WEIGHT INCREASED [None]
  - OEDEMA PERIPHERAL [None]
